FAERS Safety Report 9253125 (Version 2)
Quarter: 2013Q3

REPORT INFORMATION
  Report Type: Spontaneous
  Country: US (occurrence: US)
  Receive Date: 20130424
  Receipt Date: 20130917
  Transmission Date: 20140515
  Serious: Yes (Death, Other)
  Sender: FDA-Public Use
  Company Number: US-UCBSA-070329

PATIENT
  Age: 54 Year
  Sex: Female
  Weight: 77.1 kg

DRUGS (8)
  1. CIMZIA [Suspect]
     Indication: RHEUMATOID ARTHRITIS
     Dosage: 200 MG EVERY 14 DAYS
     Route: 058
     Dates: start: 20120524, end: 20121025
  2. METHOTREXATE [Concomitant]
     Indication: RHEUMATOID ARTHRITIS
     Dosage: DOSE: 30
     Route: 048
     Dates: end: 201210
  3. ALENDRONATE [Concomitant]
     Dosage: UNKNOWN
  4. HYDROCODONE [Concomitant]
     Dosage: UNKNOWN
  5. SIMVASTATIN [Concomitant]
     Dosage: UNKNOWN
  6. PREDNISONE [Concomitant]
     Dosage: UNKNOWN
  7. LEVOTHYROXINE [Concomitant]
     Dosage: UNKNOWN
  8. HCQ [Concomitant]
     Dosage: UNKNOWN

REACTIONS (2)
  - Lung cancer metastatic [Fatal]
  - Metastases to liver [Not Recovered/Not Resolved]
